FAERS Safety Report 4276085-2 (Version None)
Quarter: 2004Q1

REPORT INFORMATION
  Report Type: 
  Country: None (occurrence: None)
  Receive Date: 20040121
  Receipt Date: 20030827
  Transmission Date: 20041129
  Serious: No
  Sender: FDA-Public Use
  Company Number: US-GLAXOSMITHKLINE-A0423733A

PATIENT
  Age: 54 Year
  Sex: Female

DRUGS (3)
  1. VALTREX [Suspect]
     Dosage: 1000MG PER DAY
     Route: 048
  2. ELAVIL [Concomitant]
  3. VALIUM [Concomitant]

REACTIONS (3)
  - DYSGEUSIA [None]
  - GLOSSITIS [None]
  - TONGUE DISCOLOURATION [None]
